FAERS Safety Report 18864804 (Version 1)
Quarter: 2021Q1

REPORT INFORMATION
  Report Type: Spontaneous
  Country: US (occurrence: US)
  Receive Date: 20210208
  Receipt Date: 20210208
  Transmission Date: 20210420
  Serious: Yes (Hospitalization)
  Sender: FDA-Public Use
  Company Number: None

PATIENT
  Age: 69 Year
  Sex: Female

DRUGS (1)
  1. REBIF [Suspect]
     Active Substance: INTERFERON BETA-1A
     Indication: MULTIPLE SCLEROSIS
     Dosage: ?          OTHER STRENGTH:44 MCG/0.5ML ;OTHER DOSE:44 MCG/0.5ML ;?
     Route: 058
     Dates: start: 20201201

REACTIONS (6)
  - Cardiac failure congestive [None]
  - Fall [None]
  - Dysarthria [None]
  - Muscular weakness [None]
  - Pain [None]
  - Peripheral swelling [None]

NARRATIVE: CASE EVENT DATE: 202012
